FAERS Safety Report 14303877 (Version 1)
Quarter: 2017Q4

REPORT INFORMATION
  Report Type: Spontaneous
  Country: JP (occurrence: JP)
  Receive Date: 20171219
  Receipt Date: 20171219
  Transmission Date: 20180321
  Serious: Yes (Hospitalization)
  Sender: FDA-Public Use
  Company Number: JP-OTSUKA-JP-2011-10006

PATIENT
  Age: 61 Year
  Sex: Male
  Weight: 85.3 kg

DRUGS (30)
  1. ABILIFY [Suspect]
     Active Substance: ARIPIPRAZOLE
     Dosage: 3 MG, BID
     Route: 048
     Dates: start: 20100806, end: 20101104
  2. ABILIFY [Suspect]
     Active Substance: ARIPIPRAZOLE
     Dosage: 6 MG, BID
     Route: 048
     Dates: start: 20101105, end: 20101119
  3. HERBESSER [Concomitant]
     Active Substance: DILTIAZEM HYDROCHLORIDE
     Dosage: 200 MG, QD
     Route: 048
     Dates: end: 20101218
  4. CO-DIO [Concomitant]
     Active Substance: HYDROCHLOROTHIAZIDE\VALSARTAN
     Dosage: 1 DF, QD
     Route: 048
     Dates: end: 20101218
  5. MYSLEE [Concomitant]
     Active Substance: ZOLPIDEM TARTRATE
     Dosage: 10 MG, SINGLE
     Route: 048
     Dates: end: 20101218
  6. BROMVALERYLUREA [Concomitant]
     Active Substance: BROMISOVAL
     Indication: INSOMNIA
     Dosage: 0.5 G, PRN
     Route: 048
     Dates: end: 20101218
  7. CO-DIOVAN [Concomitant]
     Active Substance: HYDROCHLOROTHIAZIDE\VALSARTAN
     Dosage: TABLET
     Dates: end: 20101218
  8. ABILIFY [Suspect]
     Active Substance: ARIPIPRAZOLE
     Dosage: 6 MG, TID
     Route: 048
     Dates: start: 20101120, end: 20101218
  9. LIPIDIL [Concomitant]
     Active Substance: FENOFIBRATE
     Dosage: 200 MG, QD
     Route: 048
     Dates: end: 20101218
  10. EPL [Concomitant]
     Active Substance: LECITHIN
     Dosage: 500 MG, BID
     Route: 048
     Dates: end: 20101218
  11. VEGETAMIN-B [Concomitant]
     Active Substance: CHLORPROMAZINE HYDROCHLORIDE\PHENOBARBITAL\PROMETHAZINE
     Dosage: 1 DF, SINGLE
     Route: 048
     Dates: start: 1999, end: 20101218
  12. TRIAZOLAM. [Concomitant]
     Active Substance: TRIAZOLAM
     Dosage: TABLET
     Dates: end: 20101218
  13. LIMAS [Suspect]
     Active Substance: LITHIUM CARBONATE
     Dosage: 200 MG, BID
     Route: 048
     Dates: start: 20101121, end: 20101218
  14. KETAS [Concomitant]
     Active Substance: IBUDILAST
     Dosage: 10 MG, BID
     Route: 048
     Dates: end: 20101218
  15. ZOLPIDEM [Concomitant]
     Active Substance: ZOLPIDEM\ZOLPIDEM TARTRATE
     Dosage: TABLET
     Dates: end: 20101218
  16. BOUFUUTSUUSHOUSAN [Concomitant]
     Active Substance: HERBALS
     Dosage: GRANULES
     Dates: end: 20101218
  17. ZETIA [Concomitant]
     Active Substance: EZETIMIBE
     Dosage: 10 MG, QD
     Route: 048
     Dates: end: 20101218
  18. APLACE [Concomitant]
     Active Substance: TROXIPIDE
     Dosage: 100 MG, TID
     Route: 048
     Dates: end: 20101218
  19. SENIRAN [Concomitant]
     Active Substance: BROMAZEPAM
     Dosage: 2 MG, TID
     Route: 048
     Dates: end: 20101218
  20. FLUNITRAZEPAM [Concomitant]
     Active Substance: FLUNITRAZEPAM
     Dosage: 2 MG, SINGLE
     Route: 048
     Dates: start: 1999, end: 20101218
  21. WYPAX [Concomitant]
     Active Substance: LORAZEPAM
     Indication: RESTLESSNESS
     Dosage: 1 MG, PRN
     Route: 048
     Dates: end: 20101218
  22. ABILIFY [Suspect]
     Active Substance: ARIPIPRAZOLE
     Indication: SCHIZOPHRENIA
     Dosage: 3 MG, QD
     Route: 048
     Dates: start: 20100723, end: 20100805
  23. FENOFIBRATE. [Concomitant]
     Active Substance: FENOFIBRATE
     Dosage: CAPSULE
     Dates: end: 20101218
  24. FLUNITRAZEPAM [Concomitant]
     Active Substance: FLUNITRAZEPAM
     Dosage: TABLET
     Dates: start: 1999, end: 20101218
  25. HARNAL [Concomitant]
     Active Substance: TAMSULOSIN HYDROCHLORIDE
     Dosage: 0.2 MG, QD
     Route: 048
     Dates: end: 20101218
  26. BOFU-TSUSHO-SAN [Concomitant]
     Active Substance: HERBALS
     Dosage: 2.5 G, BID
     Route: 048
     Dates: end: 20101218
  27. HALCION [Concomitant]
     Active Substance: TRIAZOLAM
     Dosage: 0.5 MG, SINGLE
     Route: 048
     Dates: end: 20101218
  28. WYPAX [Concomitant]
     Active Substance: LORAZEPAM
     Indication: AGITATION
  29. TAMSULOSIN HYDROCHLORIDE. [Concomitant]
     Active Substance: TAMSULOSIN HYDROCHLORIDE
     Dosage: TAB
     Dates: end: 20101218
  30. LORAZEPAM. [Concomitant]
     Active Substance: LORAZEPAM
     Dosage: TABLET
     Dates: end: 20101218

REACTIONS (2)
  - Parkinsonism [Recovering/Resolving]
  - Drug interaction [Recovering/Resolving]

NARRATIVE: CASE EVENT DATE: 20101218
